FAERS Safety Report 14975244 (Version 1)
Quarter: 2018Q2

REPORT INFORMATION
  Report Type: Spontaneous
  Country: GB (occurrence: GB)
  Receive Date: 20180605
  Receipt Date: 20180605
  Transmission Date: 20180711
  Serious: Yes (Other)
  Sender: FDA-Public Use
  Company Number: GB-MYLANLABS-2018M1037178

PATIENT
  Sex: Female
  Weight: 2.1 kg

DRUGS (8)
  1. CALCIUM PLUS                       /00751501/ [Concomitant]
     Indication: PRODUCT USED FOR UNKNOWN INDICATION
     Dosage: UNK
  2. METFORMIN [Suspect]
     Active Substance: METFORMIN HYDROCHLORIDE
     Indication: GESTATIONAL DIABETES
     Dosage: UNK
     Route: 064
  3. COLECALCIFEROL [Suspect]
     Active Substance: CHOLECALCIFEROL
     Indication: PRODUCT USED FOR UNKNOWN INDICATION
     Dosage: 800 IU, QD
     Route: 064
  4. HUMULIN L [Suspect]
     Active Substance: INSULIN HUMAN
     Indication: GESTATIONAL DIABETES
     Dosage: UNK
     Route: 064
  5. VITAMINS NOS [Concomitant]
     Active Substance: VITAMINS
     Indication: PRODUCT USED FOR UNKNOWN INDICATION
     Dosage: UNK
     Route: 064
  6. CALCIUM PLUS                       /00751501/ [Suspect]
     Active Substance: CALCIUM
     Indication: PRODUCT USED FOR UNKNOWN INDICATION
     Route: 064
  7. DEXTROSE. [Suspect]
     Active Substance: DEXTROSE
     Indication: HYPOGLYCAEMIA
     Dosage: UNK
     Route: 064
  8. HUMALOG [Suspect]
     Active Substance: INSULIN LISPRO
     Indication: GESTATIONAL DIABETES
     Dosage: UNK
     Route: 064

REACTIONS (6)
  - Maternal drugs affecting foetus [None]
  - Live birth [Recovered/Resolved]
  - Premature baby [Unknown]
  - Low birth weight baby [Unknown]
  - Foetal exposure during pregnancy [Unknown]
  - Small for dates baby [Unknown]
